FAERS Safety Report 8945652 (Version 1)
Quarter: 2012Q4

REPORT INFORMATION
  Report Type: 
  Country: US (occurrence: US)
  Receive Date: 20121204
  Receipt Date: 20121204
  Transmission Date: 20130627
  Serious: No
  Sender: FDA-Public Use
  Company Number: US-AMGEN-USASP2012074545

PATIENT
  Sex: Male

DRUGS (2)
  1. ENBREL [Suspect]
     Indication: PSORIATIC ARTHROPATHY
     Dosage: 50 mg, 2 times/wk
     Dates: start: 20040901, end: 201209
  2. HUMIRA [Concomitant]
     Dosage: UNK

REACTIONS (2)
  - Skin plaque [Not Recovered/Not Resolved]
  - Pain [Not Recovered/Not Resolved]
